FAERS Safety Report 12188843 (Version 1)
Quarter: 2016Q1

REPORT INFORMATION
  Report Type: Spontaneous
  Country: PL (occurrence: PL)
  Receive Date: 20160317
  Receipt Date: 20160317
  Transmission Date: 20160526
  Serious: Yes (Hospitalization, Other)
  Sender: FDA-Public Use
  Company Number: PL-ABBVIE-16P-129-1559908-00

PATIENT
  Age: 60 Year
  Sex: Female
  Weight: 83 kg

DRUGS (4)
  1. EXVIERA [Suspect]
     Active Substance: DASABUVIR
     Indication: CHRONIC HEPATITIS C
     Route: 048
     Dates: start: 20151119, end: 20160114
  2. MODERIBA [Suspect]
     Active Substance: RIBAVIRIN
     Indication: HEPATIC CIRRHOSIS
     Route: 048
     Dates: start: 20151119, end: 20160114
  3. VIEKIRAX [Suspect]
     Active Substance: OMBITASVIR\PARITAPREVIR\RITONAVIR
     Indication: CHRONIC HEPATITIS C
     Route: 048
     Dates: start: 20151119, end: 20160114
  4. PERAZINE [Concomitant]
     Active Substance: PERAZINE
     Indication: SCHIZOPHRENIA
     Route: 048
     Dates: start: 20150901

REACTIONS (6)
  - Hepatic failure [Recovered/Resolved]
  - Nausea [Unknown]
  - Asthenia [Unknown]
  - Yellow skin [Unknown]
  - Blood bilirubin increased [Unknown]
  - Abdominal pain [Unknown]

NARRATIVE: CASE EVENT DATE: 201601
